FAERS Safety Report 17716682 (Version 1)
Quarter: 2020Q2

REPORT INFORMATION
  Report Type: Spontaneous
  Country: FR (occurrence: FR)
  Receive Date: 20200428
  Receipt Date: 20200428
  Transmission Date: 20200714
  Serious: Yes (Life-Threatening)
  Sender: FDA-Public Use
  Company Number: FR-ACCORD-179681

PATIENT
  Age: 40 Year
  Sex: Female
  Weight: 72 kg

DRUGS (8)
  1. MESTINON [Concomitant]
     Active Substance: PYRIDOSTIGMINE BROMIDE
     Dosage: STRENGTH:60 MG, COATED TABLET
     Route: 048
     Dates: start: 20200217, end: 20200221
  2. DOXORUBICIN [Suspect]
     Active Substance: DOXORUBICIN
     Indication: THYMOMA
     Route: 042
     Dates: start: 20200225, end: 20200225
  3. LEVOTHYROX [Concomitant]
     Active Substance: LEVOTHYROXINE
     Dosage: STRENGTH:75 MICROGRAMS, SCORED TABLET
     Route: 048
  4. CISPLATIN. [Suspect]
     Active Substance: CISPLATIN
     Indication: THYMOMA
     Route: 042
     Dates: start: 20200225, end: 20200225
  5. CYCLOPHOSPHAMIDE. [Suspect]
     Active Substance: CYCLOPHOSPHAMIDE
     Indication: THYMOMA
     Route: 042
     Dates: start: 20200225, end: 20200225
  6. DAFALGAN CODEINE [Concomitant]
     Active Substance: ACETAMINOPHEN\CODEINE PHOSPHATE
     Dosage: NR
     Route: 048
     Dates: start: 20200127
  7. SERESTA [Concomitant]
     Active Substance: OXAZEPAM
     Dosage: STRENGTH:10 MG, TABLET
     Route: 048
     Dates: start: 20200127
  8. SOLUPRED [Concomitant]
     Route: 048
     Dates: start: 20200222

REACTIONS (3)
  - Respiratory distress [Recovered/Resolved]
  - Myasthenia gravis crisis [Recovered/Resolved]
  - Off label use [Unknown]

NARRATIVE: CASE EVENT DATE: 20200226
